FAERS Safety Report 4548678-6 (Version None)
Quarter: 2005Q1

REPORT INFORMATION
  Report Type: 
  Country: None (occurrence: None)
  Receive Date: 20050107
  Receipt Date: 20050107
  Transmission Date: 20050727
  Serious: No
  Sender: FDA-Public Use
  Company Number: None

PATIENT
  Sex: Female
  Weight: 80.2867 kg

DRUGS (15)
  1. AVASTIN [Suspect]
     Indication: COLON CANCER
     Dosage: 366 MG Q 2 WEEKS  IV
     Route: 042
     Dates: start: 20041201
  2. PROTONIX [Concomitant]
  3. MAGNESIUM OXIDE [Concomitant]
  4. TOPROL-XL [Concomitant]
  5. LEXAPRO [Concomitant]
  6. DILAUDID [Concomitant]
  7. COMPAZINE [Concomitant]
  8. CHROMAGEN FORTE [Concomitant]
  9. FLONASE [Concomitant]
  10. COUMADIN [Concomitant]
  11. MAG-OX [Concomitant]
  12. MMW [Concomitant]
  13. POTASSIUM CHLORIDE [Concomitant]
  14. COZAAR [Concomitant]
  15. CYCLOBENZAPRINE HCL [Concomitant]

REACTIONS (1)
  - DEEP VEIN THROMBOSIS [None]
